FAERS Safety Report 21869303 (Version 24)
Quarter: 2025Q3

REPORT INFORMATION
  Report Type: Report from Study
  Country: US (occurrence: US)
  Receive Date: 20230117
  Receipt Date: 20250927
  Transmission Date: 20251020
  Serious: Yes (Hospitalization, Other)
  Sender: TAKEDA
  Company Number: US-TAKEDA-2023TUS004634

PATIENT
  Age: 65 Year
  Sex: Female
  Weight: 85.002 kg

DRUGS (55)
  1. HUMAN IMMUNOGLOBULIN G [Suspect]
     Active Substance: HUMAN IMMUNOGLOBULIN G
     Indication: Immunodeficiency common variable
     Dosage: 20 GRAM, 1/WEEK
  2. HUMAN IMMUNOGLOBULIN G [Suspect]
     Active Substance: HUMAN IMMUNOGLOBULIN G
     Dosage: 18 GRAM, 1/WEEK
     Dates: start: 20181008
  3. GAMMAGARD LIQUID [Suspect]
     Active Substance: HUMAN IMMUNOGLOBULIN G
     Indication: Product used for unknown indication
     Dosage: 9 GRAM, Q2WEEKS
     Dates: start: 20110131
  4. GAMUNEX-C [Suspect]
     Active Substance: HUMAN IMMUNOGLOBULIN G
     Indication: Product used for unknown indication
  5. DIPHENHYDRAMINE [Concomitant]
     Active Substance: DIPHENHYDRAMINE
  6. MAGNESIUM [Concomitant]
     Active Substance: MAGNESIUM
  7. EPINEPHRINE [Concomitant]
     Active Substance: EPINEPHRINE
  8. AZITHROMYCIN [Concomitant]
     Active Substance: AZITHROMYCIN
  9. LEVOTHYROXINE SODIUM [Concomitant]
     Active Substance: LEVOTHYROXINE SODIUM
  10. LIDOCAINE\PRILOCAINE [Concomitant]
     Active Substance: LIDOCAINE\PRILOCAINE
  11. GABAPENTIN [Concomitant]
     Active Substance: GABAPENTIN
  12. COMPAZINE [Concomitant]
     Active Substance: PROCHLORPERAZINE MALEATE
  13. ACETAMINOPHEN [Concomitant]
     Active Substance: ACETAMINOPHEN
  14. AUGMENTIN [Concomitant]
     Active Substance: AMOXICILLIN\CLAVULANATE POTASSIUM
  15. FLAGYL [Concomitant]
     Active Substance: METRONIDAZOLE\METRONIDAZOLE HYDROCHLORIDE
  16. ESTRACE [Concomitant]
     Active Substance: ESTRADIOL
  17. NASONEX [Concomitant]
     Active Substance: MOMETASONE FUROATE
  18. BUTALBITAL, ACETAMINOPHEN, AND CAFFEINE [Concomitant]
     Active Substance: ACETAMINOPHEN\BUTALBITAL\CAFFEINE
  19. PANTOPRAZOLE SODIUM [Concomitant]
     Active Substance: PANTOPRAZOLE SODIUM
  20. ORPHENADRINE CITRATE [Concomitant]
     Active Substance: ORPHENADRINE CITRATE
  21. ZOFRAN [Concomitant]
     Active Substance: ONDANSETRON HYDROCHLORIDE
  22. FLUCONAZOLE [Concomitant]
     Active Substance: FLUCONAZOLE
  23. CALCIUM CARBONATE [Concomitant]
     Active Substance: CALCIUM CARBONATE
  24. CLOBEX [Concomitant]
     Active Substance: CLOBETASOL PROPIONATE
  25. KETOROLAC TROMETHAMINE [Concomitant]
     Active Substance: KETOROLAC TROMETHAMINE
  26. BENADRYL [Concomitant]
     Active Substance: DIPHENHYDRAMINE HYDROCHLORIDE
  27. DEMEROL [Concomitant]
     Active Substance: MEPERIDINE HYDROCHLORIDE
  28. PROMETHAZINE [Concomitant]
     Active Substance: PROMETHAZINE HYDROCHLORIDE
  29. DIAZEPAM [Concomitant]
     Active Substance: DIAZEPAM
  30. PROMETHAZINE DM [Concomitant]
     Active Substance: DEXTROMETHORPHAN HYDROBROMIDE\PROMETHAZINE HYDROCHLORIDE
  31. ESTRADIOL [Concomitant]
     Active Substance: ESTRADIOL
  32. DIFLUCAN [Concomitant]
     Active Substance: FLUCONAZOLE
  33. MORPHINE SULFATE [Concomitant]
     Active Substance: MORPHINE SULFATE
  34. VALIUM [Concomitant]
     Active Substance: DIAZEPAM
  35. PERCOCET [Concomitant]
     Active Substance: ACETAMINOPHEN\OXYCODONE HYDROCHLORIDE
  36. Contine [Concomitant]
  37. SYNTHROID [Concomitant]
     Active Substance: LEVOTHYROXINE SODIUM
  38. MUCINEX [Concomitant]
     Active Substance: GUAIFENESIN
  39. TRAMADOL [Concomitant]
     Active Substance: TRAMADOL
  40. LYSINE [Concomitant]
     Active Substance: LYSINE
  41. ALDARA [Concomitant]
     Active Substance: IMIQUIMOD
  42. PREVACID [Concomitant]
     Active Substance: LANSOPRAZOLE
  43. PRIMIDONE [Concomitant]
     Active Substance: PRIMIDONE
  44. OXYCODONE AND ACETAMINOPHEN [Concomitant]
     Active Substance: ACETAMINOPHEN\OXYCODONE HYDROCHLORIDE
  45. TRIAZOLAM [Concomitant]
     Active Substance: TRIAZOLAM
  46. ZANTAC [Concomitant]
     Active Substance: RANITIDINE HYDROCHLORIDE
  47. ONDANSETRON [Concomitant]
     Active Substance: ONDANSETRON
  48. AMOXICILLIN [Concomitant]
     Active Substance: AMOXICILLIN
  49. KEFLEX [Concomitant]
     Active Substance: CEPHALEXIN
  50. XARELTO [Concomitant]
     Active Substance: RIVAROXABAN
  51. DIPHENHYDRAMINE HYDROCHLORIDE [Concomitant]
     Active Substance: DIPHENHYDRAMINE HYDROCHLORIDE
  52. BUTALBITAL [Concomitant]
     Active Substance: BUTALBITAL
  53. LIDOCAINE [Concomitant]
     Active Substance: LIDOCAINE
  54. MELATONIN [Concomitant]
     Active Substance: MELATONIN
  55. ORPHENADRINE [Concomitant]
     Active Substance: ORPHENADRINE

REACTIONS (54)
  - Spinal disorder [Unknown]
  - Herpes zoster [Unknown]
  - Encephalitis [Unknown]
  - Thrombosis [Recovered/Resolved]
  - Shoulder fracture [Unknown]
  - Sepsis [Unknown]
  - Renal impairment [Unknown]
  - Kidney infection [Unknown]
  - Hand fracture [Unknown]
  - Skin lesion [Unknown]
  - Sneezing [Recovered/Resolved]
  - Weight fluctuation [Unknown]
  - Sinusitis [Unknown]
  - Plantar fasciitis [Unknown]
  - Depressed mood [Unknown]
  - Illness [Unknown]
  - Crying [Unknown]
  - Frustration tolerance decreased [Unknown]
  - Ear infection [Unknown]
  - Pharyngitis streptococcal [Unknown]
  - Fall [Unknown]
  - Bedridden [Unknown]
  - Infection [Recovered/Resolved]
  - Streptococcal infection [Unknown]
  - Candida infection [Unknown]
  - Cystitis bacterial [Unknown]
  - Dermatitis contact [Unknown]
  - Lumbar puncture [Unknown]
  - Skin infection [Unknown]
  - Memory impairment [Unknown]
  - Decreased immune responsiveness [Unknown]
  - Urinary tract infection [Unknown]
  - Gastrointestinal disorder [Unknown]
  - Infusion site discharge [Unknown]
  - Osteoporosis [Unknown]
  - Drug hypersensitivity [Unknown]
  - COVID-19 [Unknown]
  - Inappropriate schedule of product administration [Unknown]
  - Abnormal weight gain [Unknown]
  - Skin abrasion [Unknown]
  - Contusion [Unknown]
  - Rash erythematous [Unknown]
  - Upper respiratory tract infection [Unknown]
  - Malaise [Unknown]
  - Erythema [Recovered/Resolved]
  - Arthralgia [Unknown]
  - Infusion site swelling [Unknown]
  - Infusion site pruritus [Unknown]
  - Headache [Unknown]
  - Infusion site erythema [Unknown]
  - Infusion site pain [Unknown]
  - Arthritis [Unknown]
  - Intervertebral disc degeneration [Unknown]
  - Arthropathy [Unknown]

NARRATIVE: CASE EVENT DATE: 20210412
